FAERS Safety Report 4895001-3 (Version None)
Quarter: 2006Q1

REPORT INFORMATION
  Report Type: 
  Country: None (occurrence: None)
  Receive Date: 20060130
  Receipt Date: 20050818
  Transmission Date: 20060701
  Serious: No
  Sender: FDA-Public Use
  Company Number: US-BRISTOL-MYERS SQUIBB COMPANY-13082375

PATIENT
  Age: 74 Year
  Sex: Female
  Weight: 83 kg

DRUGS (8)
  1. GLUCOPHAGE [Suspect]
     Indication: DIABETES MELLITUS
     Dates: start: 20050501
  2. TOPROL [Concomitant]
  3. ATENOLOL [Concomitant]
  4. GLYBURIDE [Concomitant]
  5. HYDROCHLOROTHIAZIDE [Concomitant]
  6. CALCIUM GLUCONATE [Concomitant]
  7. VITAMIN B6 [Concomitant]
  8. ASCORBIC ACID [Concomitant]

REACTIONS (1)
  - RASH [None]
